FAERS Safety Report 13065906 (Version 3)
Quarter: 2017Q1

REPORT INFORMATION
  Report Type: Spontaneous
  Country: JP (occurrence: JP)
  Receive Date: 20161227
  Receipt Date: 20170113
  Transmission Date: 20170428
  Serious: Yes (Life-Threatening, Other)
  Sender: FDA-Public Use
  Company Number: JP-GLAXOSMITHKLINE-JP2016JPN186514

PATIENT
  Age: 81 Year
  Sex: Female

DRUGS (4)
  1. AMLODIPINE [Concomitant]
     Active Substance: AMLODIPINE BESYLATE
     Dosage: 2.5 MG, QD
     Dates: start: 20161207
  2. METHYCOBAL [Concomitant]
     Active Substance: METHYLCOBALAMIN
     Dosage: 500 ?G, BID
     Dates: start: 20161207
  3. LAMICTAL [Suspect]
     Active Substance: LAMOTRIGINE
     Indication: TEMPORAL LOBE EPILEPSY
     Dosage: 25 MG, QD
     Route: 048
     Dates: end: 20161216
  4. LIXIANA [Concomitant]
     Active Substance: EDOXABAN TOSILATE MONOHYDRATE
     Dosage: 30 MG, QD
     Dates: start: 20161207

REACTIONS (12)
  - Rash maculo-papular [Recovering/Resolving]
  - Stevens-Johnson syndrome [Recovering/Resolving]
  - Lip erosion [Recovering/Resolving]
  - Erythema [Recovering/Resolving]
  - Decreased appetite [Recovering/Resolving]
  - Erythema of eyelid [Recovering/Resolving]
  - Stomatitis [Recovering/Resolving]
  - Oral mucosa erosion [Recovering/Resolving]
  - Dermatitis bullous [Recovering/Resolving]
  - Ocular hyperaemia [Recovering/Resolving]
  - Eye discharge [Recovering/Resolving]
  - Oropharyngeal pain [Recovering/Resolving]

NARRATIVE: CASE EVENT DATE: 20161212
